FAERS Safety Report 20582952 (Version 1)
Quarter: 2022Q1

REPORT INFORMATION
  Report Type: Spontaneous
  Country: US (occurrence: None)
  Receive Date: 20220311
  Receipt Date: 20220311
  Transmission Date: 20220423
  Serious: Yes (Other)
  Sender: FDA-Public Use
  Company Number: None

PATIENT
  Age: 4 Year
  Sex: Male

DRUGS (2)
  1. EXONDYS 51 [Suspect]
     Active Substance: ETEPLIRSEN
     Dosage: FREQUENCY : ONCE;?
     Dates: start: 20220225, end: 20220225
  2. DEFLAZACORT [Concomitant]
     Active Substance: DEFLAZACORT
     Dates: start: 20200202

REACTIONS (4)
  - Product dispensing error [None]
  - Wrong product administered [None]
  - Product packaging confusion [None]
  - Product name confusion [None]

NARRATIVE: CASE EVENT DATE: 20220225
